FAERS Safety Report 11460836 (Version 3)
Quarter: 2015Q4

REPORT INFORMATION
  Report Type: Report from Study
  Country: AR (occurrence: AR)
  Receive Date: 20150904
  Receipt Date: 20151013
  Transmission Date: 20160304
  Serious: Yes (Other)
  Sender: FDA-Public Use
  Company Number: AR-BRISTOL-MYERS SQUIBB COMPANY-BMS-2015-059302

PATIENT
  Sex: Male

DRUGS (1)
  1. CETUXIMAB [Suspect]
     Active Substance: CETUXIMAB
     Indication: HEAD AND NECK CANCER
     Dosage: UNK
     Route: 065
     Dates: start: 20150618

REACTIONS (6)
  - Aphonia [Unknown]
  - Diabetes mellitus [Unknown]
  - Oral discomfort [Unknown]
  - Dysphagia [Unknown]
  - Mouth ulceration [Unknown]
  - Weight decreased [Unknown]
